FAERS Safety Report 8223355-9 (Version None)
Quarter: 2012Q1

REPORT INFORMATION
  Report Type: 
  Country: None (occurrence: None)
  Receive Date: 20120313
  Receipt Date: 20120302
  Transmission Date: 20120608
  Serious: Yes (Death)
  Sender: FDA-Public Use
  Company Number: 2012SP010648

PATIENT
  Age: 47 Year
  Sex: Female

DRUGS (4)
  1. HALDOL [Concomitant]
  2. SYCREST (ASENAPINE /05706901/) [Suspect]
     Indication: BIPOLAR DISORDER
     Dosage: 5 MG;BID;SL
     Route: 060
     Dates: start: 20120123
  3. DEPAKENE [Concomitant]
  4. ZYPREXA [Concomitant]

REACTIONS (3)
  - HYPERCHOLESTEROLAEMIA [None]
  - UNEVALUABLE EVENT [None]
  - DYSPNOEA [None]
